FAERS Safety Report 10177701 (Version 1)
Quarter: 2014Q2

REPORT INFORMATION
  Report Type: Spontaneous
  Country: US (occurrence: US)
  Receive Date: 20140516
  Receipt Date: 20140516
  Transmission Date: 20141212
  Serious: No
  Sender: FDA-Public Use
  Company Number: US-SA-2014SA022890

PATIENT
  Age: 58 Year
  Sex: Male

DRUGS (2)
  1. APIDRA SOLOSTAR [Suspect]
     Indication: TYPE 2 DIABETES MELLITUS
     Dosage: TAKEN FROM:2-3 YEARS?DOSE:20/20/20
     Route: 065
  2. SOLOSTAR [Concomitant]

REACTIONS (1)
  - Injection site scar [Unknown]
